FAERS Safety Report 12887336 (Version 1)
Quarter: 2016Q4

REPORT INFORMATION
  Report Type: Report from Study
  Country: US (occurrence: US)
  Receive Date: 20161026
  Receipt Date: 20161026
  Transmission Date: 20170207
  Serious: Yes (Disabling)
  Sender: FDA-Public Use
  Company Number: US-JAZZ-2016-US-013947

PATIENT
  Age: 36 Year
  Sex: Female
  Weight: 57.8 kg

DRUGS (14)
  1. DEFIBROTIDE (INV) [Suspect]
     Active Substance: DEFIBROTIDE SODIUM
     Indication: VENOOCCLUSIVE DISEASE
     Dosage: 25 MG/KG, QD
     Route: 042
     Dates: start: 20150508, end: 20150528
  2. TPN [Concomitant]
     Active Substance: AMINO ACIDS\DEXTROSE\ELECTROLYTES NOS\SOYBEAN OIL
     Dosage: UNK
     Route: 051
     Dates: start: 20150512, end: 20150512
  3. LEUCOVORIN CALCIUM. [Concomitant]
     Active Substance: LEUCOVORIN CALCIUM
     Dosage: 50 MG, QID
     Route: 042
     Dates: start: 20150512, end: 20150513
  4. VANCOMYCIN [Concomitant]
     Active Substance: VANCOMYCIN
     Dosage: 750 MG, SINGLE
     Route: 042
     Dates: start: 20150517, end: 20150517
  5. VFEND [Concomitant]
     Active Substance: VORICONAZOLE
     Dosage: 270 MG, BID
     Dates: start: 20150518, end: 20150522
  6. TACROLIMUS. [Suspect]
     Active Substance: TACROLIMUS
     Dosage: 0.1 MG, 4.2 ML/HOUR QH
     Route: 042
     Dates: start: 20150427, end: 20150607
  7. HUMALOG [Concomitant]
     Active Substance: INSULIN LISPRO
     Dosage: 0-12 UNITS, Q 6 HOURS
     Route: 058
     Dates: start: 20150512, end: 20150520
  8. VANCOMYCIN [Concomitant]
     Active Substance: VANCOMYCIN
     Dosage: 1 G, SINGLE
     Route: 042
     Dates: start: 20150517, end: 20150519
  9. INTRALIPID [Concomitant]
     Active Substance: EGG PHOSPHOLIPIDS\GLYCERIN\SOYBEAN OIL
     Dosage: 20 %, CONTINOUS
     Route: 051
     Dates: start: 20150512, end: 20150513
  10. DILAUDID [Concomitant]
     Active Substance: HYDROMORPHONE HYDROCHLORIDE
     Dosage: 0.3 MG, Q4H
     Dates: start: 20150514, end: 20150527
  11. INTRALIPID [Concomitant]
     Active Substance: EGG PHOSPHOLIPIDS\GLYCERIN\SOYBEAN OIL
     Dosage: 20 %, CONTINOUS
     Route: 051
     Dates: start: 20150518, end: 20150519
  12. TPN [Concomitant]
     Active Substance: AMINO ACIDS\DEXTROSE\ELECTROLYTES NOS\SOYBEAN OIL
     Dosage: UNK
     Route: 051
     Dates: start: 20150518, end: 20150518
  13. CANCIDAS [Concomitant]
     Active Substance: CASPOFUNGIN ACETATE
     Dosage: 50 MG, QD
     Route: 042
     Dates: start: 20150515, end: 20150518
  14. RELISTOR [Concomitant]
     Active Substance: METHYLNALTREXONE BROMIDE
     Dosage: 8 MG, SINGLE
     Dates: start: 20150514, end: 20150514

REACTIONS (1)
  - Acute kidney injury [Recovered/Resolved]

NARRATIVE: CASE EVENT DATE: 20150519
